FAERS Safety Report 7016333-9 (Version None)
Quarter: 2010Q3

REPORT INFORMATION
  Report Type: 
  Country: None (occurrence: None)
  Receive Date: 20100927
  Receipt Date: 20100915
  Transmission Date: 20110219
  Serious: Yes (Death, Hospitalization, Other)
  Sender: FDA-Public Use
  Company Number: JP-PFIZER INC-2010103522

PATIENT
  Age: 82 Year
  Sex: Male
  Weight: 60 kg

DRUGS (7)
  1. SUTENT [Suspect]
     Indication: RENAL CELL CARCINOMA
     Dosage: 50 MG, 1X/DAY
     Route: 048
     Dates: start: 20100723, end: 20100810
  2. PARIET [Concomitant]
     Dosage: 10 MG, 1X/DAY
     Route: 048
  3. CARNACULIN [Concomitant]
     Dosage: 50 MG, 3X/DAY
     Route: 048
  4. ASPIRIN [Concomitant]
     Dosage: 100 MG, 1X/DAY
     Route: 048
  5. TRANEXAMIC ACID [Concomitant]
     Dosage: 1 DF, 3X/DAY
     Route: 048
  6. DIOVANE [Concomitant]
     Dosage: 80 MG, 1X/DAY
     Route: 048
  7. HYPEN [Concomitant]
     Dosage: 200 MG, 2X/DAY
     Route: 048
     Dates: start: 20100802

REACTIONS (5)
  - BLOOD POTASSIUM INCREASED [None]
  - CARDIAC FAILURE [None]
  - PLATELET COUNT DECREASED [None]
  - PNEUMONIA [None]
  - WHITE BLOOD CELL COUNT DECREASED [None]
